FAERS Safety Report 8168694-5 (Version None)
Quarter: 2012Q1

REPORT INFORMATION
  Report Type: 
  Country: None (occurrence: None)
  Receive Date: 20120227
  Receipt Date: 20120220
  Transmission Date: 20120608
  Serious: Yes (Other)
  Sender: FDA-Public Use
  Company Number: PHEH2011US02595

PATIENT
  Sex: Female

DRUGS (1)
  1. GILENYA [Suspect]
     Indication: MULTIPLE SCLEROSIS
     Dosage: 0.5 MG, QD
     Route: 048
     Dates: start: 20110812

REACTIONS (6)
  - MULTIPLE SCLEROSIS [None]
  - PAIN [None]
  - MUSCULAR WEAKNESS [None]
  - DYSPNOEA [None]
  - BRAIN INJURY [None]
  - GENERAL PHYSICAL CONDITION ABNORMAL [None]
